FAERS Safety Report 16769744 (Version 1)
Quarter: 2019Q3

REPORT INFORMATION
  Report Type: Spontaneous
  Country: US (occurrence: US)
  Receive Date: 20190904
  Receipt Date: 20190904
  Transmission Date: 20191005
  Serious: No
  Sender: FDA-Public Use
  Company Number: US-TEVA-2019-US-1094539

PATIENT
  Sex: Female

DRUGS (1)
  1. AJOVY [Suspect]
     Active Substance: FREMANEZUMAB-VFRM

REACTIONS (5)
  - Rash macular [Recovering/Resolving]
  - Hypersensitivity [Unknown]
  - Injection site pruritus [Recovering/Resolving]
  - Constipation [Unknown]
  - Injection site erythema [Not Recovered/Not Resolved]
